FAERS Safety Report 8888286 (Version 1)
Quarter: 2012Q4

REPORT INFORMATION
  Report Type: 
  Country: SE (occurrence: SE)
  Receive Date: 20121106
  Receipt Date: 20121106
  Transmission Date: 20130627
  Serious: Yes (Hospitalization)
  Sender: FDA-Public Use
  Company Number: SE-PFIZER INC-2012269041

PATIENT
  Sex: Female
  Weight: 69 kg

DRUGS (12)
  1. GENOTROPIN [Suspect]
     Indication: PANHYPOPITUITARISM
     Dosage: 1.0 mg, 7/wk
     Route: 058
     Dates: start: 20030522
  2. MEDROXYPROGESTERONE [Concomitant]
     Indication: BLOOD LUTEINISING HORMONE DECREASED
     Dosage: UNK
     Dates: start: 19970101
  3. MEDROXYPROGESTERONE [Concomitant]
     Indication: BLOOD FOLLICLE STIMULATING HORMONE DECREASED
  4. MEDROXYPROGESTERONE [Concomitant]
     Indication: HYPOGONADISM FEMALE
  5. CIPRAMIL [Concomitant]
     Indication: GENERAL SYMPTOM NOS
     Dosage: UNK
     Dates: start: 20030522
  6. HYDROCORTISONE [Concomitant]
     Indication: BLOOD CORTICOTROPHIN DECREASED
     Dosage: UNK
     Dates: start: 19940801
  7. LEVAXIN [Concomitant]
     Indication: BLOOD THYROID STIMULATING HORMONE DECREASED
     Dosage: UNK
     Dates: start: 19980301
  8. LEVAXIN [Concomitant]
     Indication: PRIMARY HYPOTHYROIDISM
  9. DHEA [Concomitant]
     Indication: BLOOD CORTICOTROPHIN DECREASED
     Dosage: UNK
     Dates: start: 20010101
  10. ESTRADIOL VALERATE [Concomitant]
     Indication: BLOOD LUTEINISING HORMONE DECREASED
     Dosage: UNK
     Dates: start: 19970101
  11. ESTRADIOL VALERATE [Concomitant]
     Indication: BLOOD FOLLICLE STIMULATING HORMONE DECREASED
  12. ESTRADIOL VALERATE [Concomitant]
     Indication: HYPOGONADISM FEMALE

REACTIONS (1)
  - Gastroenteritis [Unknown]
